FAERS Safety Report 12883649 (Version 2)
Quarter: 2016Q4

REPORT INFORMATION
  Report Type: Report from Study
  Country: US (occurrence: US)
  Receive Date: 20161025
  Receipt Date: 20161121
  Transmission Date: 20170207
  Serious: Yes (Hospitalization, Other)
  Sender: FDA-Public Use
  Company Number: US-ELI_LILLY_AND_COMPANY-US201610003863

PATIENT
  Age: 69 Year
  Sex: Female

DRUGS (22)
  1. HUMALOG [Concomitant]
     Active Substance: INSULIN LISPRO
     Dosage: UNK
     Dates: start: 1996
  2. BENADRYL                           /00945501/ [Concomitant]
  3. FORTEO [Suspect]
     Active Substance: TERIPARATIDE
     Dosage: 20 UG, QD
     Route: 058
  4. CALCIUM [Concomitant]
     Active Substance: CALCIUM
  5. ROBAXIN [Concomitant]
     Active Substance: METHOCARBAMOL
  6. LASIX [Concomitant]
     Active Substance: FUROSEMIDE
  7. LOSARTAN POTASSIUM. [Concomitant]
     Active Substance: LOSARTAN POTASSIUM
  8. SIMVASTATIN. [Concomitant]
     Active Substance: SIMVASTATIN
  9. VOLTAREN [Concomitant]
     Active Substance: DICLOFENAC SODIUM
  10. BABY ASPIRIN [Concomitant]
     Active Substance: ASPIRIN
  11. AMOXICILLIN. [Concomitant]
     Active Substance: AMOXICILLIN
  12. FORTEO [Suspect]
     Active Substance: TERIPARATIDE
     Indication: OSTEOPOROSIS
     Dosage: 20 UG, QD
     Route: 058
     Dates: start: 20160727
  13. MULTIVITAMINS                      /00116001/ [Concomitant]
  14. METOPROLOL. [Concomitant]
     Active Substance: METOPROLOL
  15. VITAMIIN C [Concomitant]
     Active Substance: ASCORBIC ACID
  16. MAGNESIUM OXIDE. [Concomitant]
     Active Substance: MAGNESIUM OXIDE
  17. VITAMIN D [Concomitant]
     Active Substance: CHOLECALCIFEROL
  18. LANTUS [Concomitant]
     Active Substance: INSULIN GLARGINE
  19. POTASSIUM CHLORIDE. [Concomitant]
     Active Substance: POTASSIUM CHLORIDE
  20. VITAMIN B12 [Concomitant]
     Active Substance: CYANOCOBALAMIN
  21. HYDROCODONE [Concomitant]
     Active Substance: HYDROCODONE
  22. CLARITIN [Concomitant]
     Active Substance: LORATADINE

REACTIONS (4)
  - Escherichia sepsis [Recovering/Resolving]
  - Nephrolithiasis [Recovering/Resolving]
  - Mobility decreased [Unknown]
  - Kidney infection [Recovering/Resolving]

NARRATIVE: CASE EVENT DATE: 20160927
